FAERS Safety Report 8988969 (Version 1)
Quarter: 2012Q4

REPORT INFORMATION
  Report Type: 
  Country: GB (occurrence: GB)
  Receive Date: 20121228
  Receipt Date: 20121228
  Transmission Date: 20130627
  Serious: Yes (Other)
  Sender: FDA-Public Use
  Company Number: PHFR2012GB004878

PATIENT
  Age: 40 Year
  Sex: Female

DRUGS (6)
  1. VOLTAROL [Suspect]
     Indication: PAIN
     Dosage: 50 mg, UNK
     Route: 030
     Dates: start: 20051118
  2. VERSATIS [Concomitant]
  3. TRAMADOL [Concomitant]
  4. PARACETAMOL [Concomitant]
  5. CODEINE [Concomitant]
  6. METFORMIN [Concomitant]
     Indication: DIABETES MELLITUS

REACTIONS (29)
  - Meralgia paraesthetica [Unknown]
  - Peripheral nerve lesion [Unknown]
  - Complex regional pain syndrome [Unknown]
  - Dysaesthesia [Unknown]
  - Injection site pain [Unknown]
  - Injection site anaesthesia [Unknown]
  - Paraesthesia [Unknown]
  - Hypoaesthesia [Unknown]
  - Sensory loss [Unknown]
  - Allodynia [Unknown]
  - Arthralgia [Unknown]
  - Tenderness [Unknown]
  - Pain in extremity [Not Recovered/Not Resolved]
  - Pain [Unknown]
  - Neuralgia [Unknown]
  - Adjustment disorder [Unknown]
  - Post-traumatic stress disorder [Unknown]
  - Depressed mood [Unknown]
  - Depression [Unknown]
  - Flashback [Unknown]
  - Anxiety [Unknown]
  - Agoraphobia [Unknown]
  - Toxic neuropathy [Unknown]
  - Diabetic neuropathy [Unknown]
  - Feeling of body temperature change [Unknown]
  - Irritability [Unknown]
  - Alopecia [Unknown]
  - Hypersensitivity [Unknown]
  - Abdominal discomfort [Unknown]
